FAERS Safety Report 5425964-9 (Version None)
Quarter: 2007Q3

REPORT INFORMATION
  Report Type: 
  Country: None (occurrence: None)
  Receive Date: 20070827
  Receipt Date: 20070816
  Transmission Date: 20080115
  Serious: Yes (Hospitalization, Other)
  Sender: FDA-Public Use
  Company Number: US-NOVOPROD-260918

PATIENT
  Sex: Male
  Weight: 74.921 kg

DRUGS (8)
  1. NOVOLOG MIX 70/30 [Suspect]
     Indication: INSULIN-REQUIRING TYPE II DIABETES MELLITUS
     Dosage: 64 U, QD
     Route: 058
     Dates: start: 20070118
  2. LABETALOL HCL [Concomitant]
     Dates: start: 20070209
  3. PRINIVIL [Concomitant]
     Dates: start: 20070209
  4. NORVASC [Concomitant]
     Indication: HYPERTENSION
     Dosage: 10 MG, QD
     Route: 048
     Dates: start: 19990303
  5. XANAX [Concomitant]
     Indication: ANXIETY
     Dosage: 2 MG, QD
     Route: 048
     Dates: start: 20050601
  6. ZOCOR [Concomitant]
     Indication: HYPERLIPIDAEMIA
     Dosage: 20 MG, QD
     Route: 048
     Dates: start: 20050701
  7. METFORMIN HCL [Concomitant]
     Indication: DIABETES MELLITUS
     Dosage: 1600 MG, QD
     Route: 048
     Dates: start: 20030404
  8. GLIMEPIRIDE [Concomitant]
     Indication: DIABETES MELLITUS
     Dosage: 4 MG, QD
     Route: 048
     Dates: start: 20030401

REACTIONS (1)
  - EMBOLISM [None]
